FAERS Safety Report 8716969 (Version 2)
Quarter: 2012Q4

REPORT INFORMATION
  Report Type: 
  Country: FR (occurrence: FR)
  Receive Date: 20120810
  Receipt Date: 20121107
  Transmission Date: 20130627
  Serious: Yes (Hospitalization, Other)
  Sender: FDA-Public Use
  Company Number: FR-JNJFOC-20120613786

PATIENT
  Sex: Male
  Weight: 52 kg

DRUGS (6)
  1. INTELENCE [Suspect]
     Indication: HIV INFECTION
     Route: 048
     Dates: start: 20120531, end: 20120611
  2. CYMEVAN [Suspect]
     Indication: CYTOMEGALOVIRUS INFECTION
     Route: 042
     Dates: start: 20120531, end: 20120609
  3. IZILOX [Concomitant]
     Indication: TUBERCULOSIS
     Route: 048
     Dates: start: 20120524
  4. ETHAMBUTOL [Concomitant]
     Indication: TUBERCULOSIS
     Route: 048
     Dates: start: 20120415, end: 20120522
  5. RIMIFON [Concomitant]
     Indication: TUBERCULOSIS
     Route: 048
     Dates: start: 20120415
  6. PIRILENE [Concomitant]
     Indication: TUBERCULOSIS
     Route: 048
     Dates: start: 20120415

REACTIONS (1)
  - Drug eruption [Recovered/Resolved]
